FAERS Safety Report 16659110 (Version 1)
Quarter: 2019Q3

REPORT INFORMATION
  Report Type: Report from Study
  Country: None (occurrence: AR)
  Receive Date: 20190802
  Receipt Date: 20190802
  Transmission Date: 20191004
  Serious: Yes (Other)
  Sender: FDA-Public Use
  Company Number: AR-ABBVIE-19K-007-2827799-00

PATIENT
  Sex: Male
  Weight: 2.6 kg

DRUGS (1)
  1. HUMIRA [Suspect]
     Active Substance: ADALIMUMAB
     Indication: MATERNAL EXPOSURE TIMING UNSPECIFIED
     Route: 064

REACTIONS (3)
  - Influenza [Unknown]
  - Umbilical hernia [Unknown]
  - Bronchitis [Recovering/Resolving]

NARRATIVE: CASE EVENT DATE: 2019
